FAERS Safety Report 9890678 (Version 2)
Quarter: 2014Q3

REPORT INFORMATION
  Report Type: Report from Study
  Country: IT (occurrence: IT)
  Receive Date: 20140212
  Receipt Date: 20140905
  Transmission Date: 20150326
  Serious: Yes (Death)
  Sender: FDA-Public Use
  Company Number: IT-ROCHE-1348015

PATIENT
  Age: 74 Year
  Sex: Male

DRUGS (2)
  1. VEMURAFENIB [Suspect]
     Active Substance: VEMURAFENIB
     Indication: METASTATIC MALIGNANT MELANOMA
     Route: 048
     Dates: start: 2012, end: 20120820
  2. VEMURAFENIB [Suspect]
     Active Substance: VEMURAFENIB
     Route: 048
     Dates: start: 20120904, end: 201302

REACTIONS (5)
  - Dysphagia [Unknown]
  - Hemiparesis [Fatal]
  - Disease progression [Fatal]
  - General physical health deterioration [Unknown]
  - Neurological symptom [Unknown]

NARRATIVE: CASE EVENT DATE: 201302
